FAERS Safety Report 10392281 (Version 1)
Quarter: 2014Q3

REPORT INFORMATION
  Report Type: Report from Study
  Country: US (occurrence: US)
  Receive Date: 20140819
  Receipt Date: 20140819
  Transmission Date: 20150326
  Serious: Yes (Other)
  Sender: FDA-Public Use
  Company Number: US-ROCHE-1449386

PATIENT
  Sex: Female
  Weight: 51.6 kg

DRUGS (9)
  1. AMANTADINE [Concomitant]
     Active Substance: AMANTADINE
     Route: 065
  2. LEVOTHYROXINE [Concomitant]
     Active Substance: LEVOTHYROXINE
     Route: 065
  3. DIVALPROEX [Concomitant]
     Active Substance: DIVALPROEX SODIUM
  4. HYDROCORTISONE. [Concomitant]
     Active Substance: HYDROCORTISONE
     Route: 065
  5. LAMOTRIGIN [Concomitant]
     Active Substance: LAMOTRIGINE
     Route: 065
  6. NUTROPIN AQ [Suspect]
     Active Substance: SOMATROPIN
     Indication: HYPOPITUITARISM
     Dosage: 0.11 MG/KG PER WEEK
     Route: 058
  7. GABA [Concomitant]
     Active Substance: .GAMMA.-AMINOBUTYRIC ACID
  8. DIGESTIVE ENZYMES [Concomitant]
     Active Substance: UNSPECIFIED INGREDIENT
  9. RISPERIDONE. [Concomitant]
     Active Substance: RISPERIDONE
     Route: 065

REACTIONS (11)
  - Nocturia [Unknown]
  - Abnormal behaviour [Unknown]
  - Convulsion [Unknown]
  - Overweight [Unknown]
  - Blood glucose decreased [Unknown]
  - Constipation [Unknown]
  - Rash [Unknown]
  - Increased appetite [Unknown]
  - Weight increased [Unknown]
  - Joint dislocation postoperative [Unknown]
  - Insulin-like growth factor decreased [Unknown]
